FAERS Safety Report 7706359-1 (Version None)
Quarter: 2011Q3

REPORT INFORMATION
  Report Type: 
  Country: None (occurrence: None)
  Receive Date: 20110824
  Receipt Date: 20110811
  Transmission Date: 20111222
  Serious: Yes (Hospitalization)
  Sender: FDA-Public Use
  Company Number: IT-JNJFOC-20100701905

PATIENT
  Sex: Male
  Weight: 46.5 kg

DRUGS (3)
  1. ANTIBIOTICS [Concomitant]
     Indication: CROHN'S DISEASE
  2. INFLIXIMAB, RECOMBINANT [Suspect]
     Indication: CROHN'S DISEASE
     Route: 042
     Dates: start: 20100111
  3. INFLIXIMAB, RECOMBINANT [Suspect]
     Route: 042
     Dates: start: 20100423

REACTIONS (1)
  - FISTULA [None]
